FAERS Safety Report 7525895-4 (Version None)
Quarter: 2011Q2

REPORT INFORMATION
  Report Type: 
  Country: None (occurrence: None)
  Receive Date: 20110606
  Receipt Date: 20110527
  Transmission Date: 20111010
  Serious: Yes (Life-Threatening, Hospitalization)
  Sender: FDA-Public Use
  Company Number: B0689981A

PATIENT
  Age: 29 Year
  Sex: Male

DRUGS (18)
  1. LENDORMIN [Concomitant]
     Indication: INSOMNIA
     Route: 048
     Dates: start: 20080327
  2. HOKUNALIN [Concomitant]
     Indication: ANALGESIC ASTHMA SYNDROME
     Dosage: 2MG PER DAY
     Route: 062
  3. MAGMITT [Concomitant]
     Indication: CONSTIPATION
     Dosage: 1980MG PER DAY
     Route: 048
  4. CLARITHROMYCIN [Concomitant]
     Route: 048
  5. DEPAKENE [Suspect]
     Indication: BIPOLAR DISORDER
     Dosage: 400MG PER DAY
     Route: 048
     Dates: start: 20100702, end: 20100925
  6. DEPAKENE [Suspect]
     Dosage: 200MG PER DAY
     Route: 048
     Dates: start: 20100704, end: 20100925
  7. OMEPRAZOLE [Concomitant]
     Indication: GASTRIC ULCER
     Dosage: 20MG PER DAY
     Route: 048
  8. THEO-DUR [Concomitant]
     Indication: ANALGESIC ASTHMA SYNDROME
     Dosage: 800MG PER DAY
     Route: 048
  9. DECADRON [Concomitant]
     Indication: ANALGESIC ASTHMA SYNDROME
     Dosage: 1MG PER DAY
     Route: 048
  10. LAMICTAL [Suspect]
     Indication: BIPOLAR DISORDER
     Dosage: 25MG ALTERNATE DAYS
     Route: 048
     Dates: start: 20100820, end: 20100901
  11. LAMICTAL [Suspect]
     Dosage: 25MG PER DAY
     Route: 048
     Dates: start: 20100902, end: 20100916
  12. LAMICTAL [Suspect]
     Dosage: 50MG PER DAY
     Route: 048
     Dates: start: 20100917, end: 20100927
  13. LEVOTOMIN [Concomitant]
     Indication: INSOMNIA
     Dosage: 10MG PER DAY
     Route: 048
     Dates: start: 20080509
  14. BENZALIN [Concomitant]
     Indication: INSOMNIA
     Dosage: 10MG PER DAY
     Route: 048
     Dates: start: 20080622
  15. SINGULAIR [Concomitant]
     Indication: ANALGESIC ASTHMA SYNDROME
     Dosage: 10MG PER DAY
     Route: 048
  16. PROMAC [Concomitant]
     Indication: GASTRIC ULCER
     Dosage: 150MG PER DAY
     Route: 048
  17. ZOLPIDEM [Concomitant]
     Indication: BIPOLAR DISORDER
     Route: 048
     Dates: start: 20080509
  18. SILECE [Concomitant]
     Indication: INSOMNIA
     Dosage: 2MG PER DAY
     Route: 048
     Dates: start: 20080327

REACTIONS (2)
  - ANALGESIC ASTHMA SYNDROME [None]
  - TOXIC EPIDERMAL NECROLYSIS [None]
